FAERS Safety Report 6707620-X (Version None)
Quarter: 2010Q2

REPORT INFORMATION
  Report Type: 
  Country: None (occurrence: None)
  Receive Date: 20100503
  Receipt Date: 20090929
  Transmission Date: 20101027
  Serious: No
  Sender: FDA-Public Use
  Company Number: US-ASTRAZENECA-2009SE16568

PATIENT
  Sex: Female

DRUGS (3)
  1. NEXIUM [Suspect]
     Indication: GASTROOESOPHAGEAL REFLUX DISEASE
     Route: 048
  2. NEXIUM [Suspect]
     Route: 048
  3. NEXIUM [Suspect]
     Route: 048
     Dates: start: 20090918, end: 20090925

REACTIONS (5)
  - ANXIETY [None]
  - CHEST DISCOMFORT [None]
  - GASTRIC HAEMORRHAGE [None]
  - HEADACHE [None]
  - HEART RATE INCREASED [None]
